FAERS Safety Report 7694453-3 (Version None)
Quarter: 2011Q3

REPORT INFORMATION
  Report Type: 
  Country: None (occurrence: None)
  Receive Date: 20110819
  Receipt Date: 20110805
  Transmission Date: 20111222
  Serious: Yes (Hospitalization)
  Sender: FDA-Public Use
  Company Number: PHHY2011MX71183

PATIENT
  Sex: Male

DRUGS (1)
  1. EXFORGE HCT [Suspect]
     Indication: HYPERTENSION
     Dosage: 1 DF, (160 MG VALS/5 MG AMLO/12.5 MG HYDR)
     Dates: start: 20110701, end: 20110726

REACTIONS (3)
  - LUNG DISORDER [None]
  - PULMONARY TUBERCULOSIS [None]
  - BLOOD PRESSURE DECREASED [None]
